FAERS Safety Report 18282899 (Version 2)
Quarter: 2021Q3

REPORT INFORMATION
  Report Type: Spontaneous
  Country: CA (occurrence: CA)
  Receive Date: 20200918
  Receipt Date: 20210802
  Transmission Date: 20211014
  Serious: Yes (Other)
  Sender: FDA-Public Use
  Company Number: CA-SA-2020SA250493

PATIENT
  Age: 57 Year
  Sex: Female

DRUGS (42)
  1. SULFASALAZINE. [Suspect]
     Active Substance: SULFASALAZINE
     Indication: ARTHRALGIA
     Dosage: UNK
  2. SULFASALAZINE. [Suspect]
     Active Substance: SULFASALAZINE
     Indication: PAIN IN EXTREMITY
  3. FOLIC ACID. [Concomitant]
     Active Substance: FOLIC ACID
     Dosage: 5 MG, QD, 5/7 DAYS A WEEK
  4. OMEGA 3 [DOCOSAHEXAENOIC ACID;EICOSAPENTAENOIC ACID;TOCOPHEROL] [Concomitant]
     Active Substance: DOCONEXENT\ICOSAPENT\TOCOPHEROL
  5. TEMAZEPAM. [Concomitant]
     Active Substance: TEMAZEPAM
     Indication: SLEEP DISORDER
     Dosage: 15 MG, HS
  6. FERROUS FUMARATE [Suspect]
     Active Substance: FERROUS FUMARATE
     Dosage: 300 MG, QD
  7. LEFLUNOMIDE. [Suspect]
     Active Substance: LEFLUNOMIDE
     Dosage: UNK MG
  8. METHOTREXATE. [Suspect]
     Active Substance: METHOTREXATE
     Indication: ARTHRALGIA
     Dosage: 20 MG, QW
  9. HYDROCHLOROTHIAZIDE. [Concomitant]
     Active Substance: HYDROCHLOROTHIAZIDE
  10. AMITRIPTYLINE [Interacting]
     Active Substance: AMITRIPTYLINE
     Dosage: 20 UNK
  11. CELLCEPT [Concomitant]
     Active Substance: MYCOPHENOLATE MOFETIL\MYCOPHENOLATE MOFETIL HYDROCHLORIDE
     Dosage: 20 MG
  12. RALIVIA [Concomitant]
     Active Substance: TRAMADOL HYDROCHLORIDE
     Dosage: 300 MG, QD
  13. METHOTREXATE. [Suspect]
     Active Substance: METHOTREXATE
     Dosage: 25 MG
  14. TRAMACET [Concomitant]
     Active Substance: ACETAMINOPHEN\TRAMADOL
     Dosage: 2 DF, BID
  15. TRAMADOL. [Interacting]
     Active Substance: TRAMADOL
  16. D [Concomitant]
     Dosage: 3000 IU, QD
  17. SALAZOPYRIN [Concomitant]
     Active Substance: SULFASALAZINE
     Dosage: 2 G, QD
  18. FIORINAL [Concomitant]
     Active Substance: ASPIRIN\BUTALBITAL\CAFFEINE
     Indication: MIGRAINE
  19. DILTIAZEM. [Concomitant]
     Active Substance: DILTIAZEM
  20. HYDROXYCHLOROQUINE [Suspect]
     Active Substance: HYDROXYCHLOROQUINE
     Indication: ARTHRALGIA
     Dosage: UNK
  21. IMURAN [Suspect]
     Active Substance: AZATHIOPRINE
  22. TIAZAC [Concomitant]
     Active Substance: DILTIAZEM HYDROCHLORIDE
  23. ARTHROTEC [Concomitant]
     Active Substance: DICLOFENAC SODIUM\MISOPROSTOL
  24. TOPAMAX [Concomitant]
     Active Substance: TOPIRAMATE
  25. HYDROXYCHLOROQUINE SULFATE. [Concomitant]
     Active Substance: HYDROXYCHLOROQUINE SULFATE
     Dosage: 400 MG, QD
  26. METHOTREXATE. [Suspect]
     Active Substance: METHOTREXATE
     Dosage: 20 MG, QW
  27. MAXALT [Concomitant]
     Active Substance: RIZATRIPTAN BENZOATE
     Indication: MIGRAINE
  28. CELLCEPT [Concomitant]
     Active Substance: MYCOPHENOLATE MOFETIL\MYCOPHENOLATE MOFETIL HYDROCHLORIDE
     Dosage: UNK MG
  29. OXYCOCET [Concomitant]
     Active Substance: ACETAMINOPHEN\OXYCODONE HYDROCHLORIDE
     Indication: PAIN
     Dosage: UNK UNK, PRN
  30. OMEGA 3 [FISH OIL] [Concomitant]
     Active Substance: FISH OIL
  31. LEFLUNOMIDE. [Concomitant]
     Active Substance: LEFLUNOMIDE
     Dosage: 20 UNK
  32. MYCOPHENOLATE MOFETIL HYDROCHLORIDE [Concomitant]
     Active Substance: MYCOPHENOLATE MOFETIL HYDROCHLORIDE
     Dosage: UNK
  33. HYDROXYCHLOROQUINE [Suspect]
     Active Substance: HYDROXYCHLOROQUINE
     Indication: PAIN IN EXTREMITY
  34. LEFLUNOMIDE. [Suspect]
     Active Substance: LEFLUNOMIDE
     Dosage: 10 MG, QOD
  35. METHOTREXATE. [Suspect]
     Active Substance: METHOTREXATE
     Indication: PAIN IN EXTREMITY
     Dosage: 25 MG
  36. PREDNISONE. [Concomitant]
     Active Substance: PREDNISONE
     Dosage: 5 MG, QD
  37. AMITRIPTYLINE [Interacting]
     Active Substance: AMITRIPTYLINE
     Dosage: 10 MG
  38. VITAMIN D [VITAMIN D NOS] [Concomitant]
     Active Substance: VITAMIN D NOS
  39. LEFLUNOMIDE. [Concomitant]
     Active Substance: LEFLUNOMIDE
     Dosage: 10 MG
  40. TOPIRAMATE. [Concomitant]
     Active Substance: TOPIRAMATE
     Dosage: UNK
  41. VIT D [Concomitant]
     Active Substance: VITAMIN D NOS
     Dosage: 3000 IU, QD
  42. CEFIXIME. [Concomitant]
     Active Substance: CEFIXIME

REACTIONS (25)
  - Neuropathy peripheral [Recovered/Resolved]
  - Polyarthritis [Unknown]
  - Osteoarthritis [Unknown]
  - Liver function test increased [Unknown]
  - Rheumatoid arthritis [Unknown]
  - Inflammation [Unknown]
  - Aphthous ulcer [Unknown]
  - Photosensitivity reaction [Unknown]
  - Foot deformity [Unknown]
  - Off label use [Unknown]
  - Dysgeusia [Unknown]
  - Facial pain [Unknown]
  - Depression [Unknown]
  - Back pain [Unknown]
  - Drug ineffective for unapproved indication [Unknown]
  - Constipation [Unknown]
  - Fibromyalgia [Unknown]
  - Alanine aminotransferase increased [Unknown]
  - Malaise [Unknown]
  - Paraesthesia [Unknown]
  - Road traffic accident [Unknown]
  - Myofascial pain syndrome [Unknown]
  - Systemic lupus erythematosus [Unknown]
  - Migraine [Unknown]
  - Therapeutic response decreased [Unknown]
